FAERS Safety Report 4485442-0 (Version None)
Quarter: 2004Q4

REPORT INFORMATION
  Report Type: 
  Country: None (occurrence: None)
  Receive Date: 20041026
  Receipt Date: 20041014
  Transmission Date: 20050328
  Serious: Yes (Hospitalization)
  Sender: FDA-Public Use
  Company Number: JP-BRISTOL-MYERS SQUIBB COMPANY-12731279

PATIENT
  Age: 73 Year
  Sex: Male
  Weight: 50 kg

DRUGS (3)
  1. PACLITAXEL [Suspect]
     Indication: NON-SMALL CELL LUNG CANCER
     Dosage: X 6/7 WEEKS
     Dates: start: 20040601
  2. SELBEX [Concomitant]
     Indication: PROPHYLAXIS
     Dosage: CAPSULE
     Route: 048
     Dates: start: 20040713
  3. SEVEN E-P [Concomitant]
     Indication: ANOREXIA
     Route: 048
     Dates: start: 20040713

REACTIONS (3)
  - ANOREXIA [None]
  - NAUSEA [None]
  - VOMITING [None]
